FAERS Safety Report 4411574-9 (Version None)
Quarter: 2004Q3

REPORT INFORMATION
  Report Type: 
  Country: None (occurrence: None)
  Receive Date: 20040727
  Receipt Date: 20040727
  Transmission Date: 20050211
  Serious: Yes (Life-Threatening, Hospitalization)
  Sender: FDA-Public Use
  Company Number: None

PATIENT
  Age: 23 Year
  Sex: Male
  Weight: 87 kg

DRUGS (1)
  1. RISPERDAL [Suspect]
     Dosage: 25 MG IM Q 2 W
     Route: 030
     Dates: start: 20040625

REACTIONS (1)
  - NEUROLEPTIC MALIGNANT SYNDROME [None]
